FAERS Safety Report 6874751-3 (Version None)
Quarter: 2010Q3

REPORT INFORMATION
  Report Type: 
  Country: None (occurrence: None)
  Receive Date: 20100723
  Receipt Date: 20100707
  Transmission Date: 20110219
  Serious: Yes (Other)
  Sender: FDA-Public Use
  Company Number: AUR-APL-2010-01830

PATIENT
  Age: 69 Year
  Sex: Male
  Weight: 118 kg

DRUGS (13)
  1. HYDROCHLOROTHIAZIDE [Suspect]
     Indication: HYPERTENSION
     Dosage: 25MG, DAILY, ORAL
     Route: 048
  2. LIPITOR [Suspect]
     Indication: BLOOD CHOLESTEROL INCREASED
     Dosage: 5MG, DAILY, ORAL
     Route: 048
  3. LIPITOR [Suspect]
     Indication: BLOOD CHOLESTEROL INCREASED
     Dosage: 10MG, DAILY, ORAL
     Route: 048
  4. LIPITOR [Suspect]
     Indication: BLOOD CHOLESTEROL INCREASED
     Dosage: 20MG, DAILY, ORAL
     Route: 048
  5. LIPITOR [Suspect]
     Indication: BLOOD CHOLESTEROL INCREASED
     Dosage: 40MG, DAILY, ORAL
     Route: 048
  6. PLAVIX [Suspect]
     Indication: BLOOD CHOLESTEROL INCREASED
     Dosage: 75 MG, DAILY, ORAL
     Route: 048
  7. CADUET [Suspect]
     Indication: BLOOD CHOLESTEROL INCREASED
     Dosage: 10/20MG, DAILY, ORAL
     Route: 048
  8. ATENOLOL [Concomitant]
  9. NORVASC [Concomitant]
  10. PROSCAR [Concomitant]
  11. XALATAN [Concomitant]
  12. ZETIA [Concomitant]
  13. ACETYLSALICYLIC ACID SRT [Concomitant]

REACTIONS (9)
  - ABASIA [None]
  - ACCIDENT [None]
  - ANKLE OPERATION [None]
  - BLOOD POTASSIUM DECREASED [None]
  - FALL [None]
  - MUSCULAR WEAKNESS [None]
  - PERONEAL NERVE PALSY [None]
  - SPINAL LIGAMENT OPERATION [None]
  - WEIGHT INCREASED [None]
